FAERS Safety Report 5758678-6 (Version None)
Quarter: 2008Q2

REPORT INFORMATION
  Report Type: 
  Country: None (occurrence: None)
  Receive Date: 20080603
  Receipt Date: 20080603
  Transmission Date: 20081010
  Serious: Yes (Life-Threatening, Hospitalization)
  Sender: FDA-Public Use
  Company Number: None

PATIENT
  Age: 62 Year
  Sex: Female
  Weight: 65.9 kg

DRUGS (1)
  1. PHYTONADIONE [Suspect]
     Indication: COAGULOPATHY
     Dosage: 5 MG X 1 DOSE IV
     Route: 042
     Dates: start: 20080111

REACTIONS (2)
  - ANAPHYLACTIC SHOCK [None]
  - BLOOD PRESSURE INCREASED [None]
